FAERS Safety Report 5269733-1 (Version None)
Quarter: 2007Q1

REPORT INFORMATION
  Report Type: 
  Country: None (occurrence: None)
  Receive Date: 20070320
  Receipt Date: 20070308
  Transmission Date: 20070707
  Serious: Yes (Life-Threatening)
  Sender: FDA-Public Use
  Company Number: JP-ROCHE-485420

PATIENT
  Age: 15 Year
  Sex: Female
  Weight: 48 kg

DRUGS (4)
  1. TAMIFLU [Suspect]
     Route: 048
     Dates: start: 20070220, end: 20070220
  2. VOLTAREN [Concomitant]
     Dosage: ON 19 FEB 2007, THE PATIENT RECEIVED 1 DOSE FORM, ONCE DAILY AND ON 20 FEB 2007, SHE RECEIVED 1 DOS+
     Route: 048
     Dates: start: 20070219, end: 20070220
  3. UNSPECIFIED MEDICATION [Concomitant]
     Dosage: REPORTED AS UNKNOWN DRUG (ANTIBIOTIC PREPARATIONS ACTING MAINLY ON GRAM-POSITIVE).
     Route: 041
     Dates: start: 20070220, end: 20070220
  4. CALONAL [Concomitant]
     Dosage: DOSE FORM REPORTED AS ORAL FORMULATION (NOT OTHERWISE SPECIFIED).
     Route: 048
     Dates: start: 20070220, end: 20070220

REACTIONS (1)
  - ANAPHYLACTOID REACTION [None]
